FAERS Safety Report 5857707-9 (Version None)
Quarter: 2008Q3

REPORT INFORMATION
  Report Type: 
  Country: None (occurrence: None)
  Receive Date: 20080826
  Receipt Date: 20080430
  Transmission Date: 20090109
  Serious: No
  Sender: FDA-Public Use
  Company Number: US-BAYER-200822238NA

PATIENT
  Age: 23 Year
  Sex: Female
  Weight: 64 kg

DRUGS (1)
  1. YASMIN [Suspect]
     Indication: CONTRACEPTION
     Route: 048
     Dates: start: 20040101, end: 20080330

REACTIONS (3)
  - MALAISE [None]
  - MENSTRUATION DELAYED [None]
  - WEIGHT INCREASED [None]
